FAERS Safety Report 4352482-1 (Version None)
Quarter: 2004Q2

REPORT INFORMATION
  Report Type: 
  Country: None (occurrence: None)
  Receive Date: 20040409
  Receipt Date: 20040123
  Transmission Date: 20050107
  Serious: No
  Sender: FDA-Public Use
  Company Number: PHEH2004US01162

PATIENT
  Age: 46 Year
  Sex: Female

DRUGS (2)
  1. ELIDEL [Suspect]
     Indication: ROSACEA
     Dosage: BID, TOPICAL
     Route: 061
     Dates: start: 20030101
  2. DEPAKOTE [Concomitant]

REACTIONS (4)
  - ARTHRALGIA [None]
  - HERPES SIMPLEX [None]
  - PSORIASIS [None]
  - SKIN PAPILLOMA [None]
